FAERS Safety Report 10709992 (Version 10)
Quarter: 2018Q4

REPORT INFORMATION
  Report Type: Spontaneous
  Country: US (occurrence: US)
  Receive Date: 20150114
  Receipt Date: 20181002
  Transmission Date: 20190204
  Serious: No
  Sender: FDA-Public Use
  Company Number: US-PFIZER INC-2015010909

PATIENT
  Age: 60 Year
  Sex: Female
  Weight: 113 kg

DRUGS (18)
  1. MICROZIDE [Concomitant]
     Active Substance: HYDROCHLOROTHIAZIDE
     Dosage: 12.5 MG, 1X/DAY (TAKE ONE CAPSULE BY MOUTH ONCE DAILY ALONG WITH LISINOPRIL)
     Route: 048
  2. WARFARIN [Concomitant]
     Active Substance: WARFARIN
     Dosage: 2.5 MG, UNK (TAKE 2.5 MG M F AND 5 MG WARFARIN THE OTHER DAYS OF THE WEEK )
  3. GLYBURIDE. [Concomitant]
     Active Substance: GLYBURIDE
     Indication: DIABETES MELLITUS
     Dosage: 5 MG, 2X/DAY
  4. LYRICA [Suspect]
     Active Substance: PREGABALIN
     Indication: FIBROMYALGIA
  5. DIABETA [Concomitant]
     Active Substance: GLYBURIDE
     Dosage: 5 MG, 2X/DAY (TAKE TWO TABLET BY MOUTH TWICE DAILY)
     Route: 048
  6. HUMULIN N [Concomitant]
     Active Substance: INSULIN HUMAN
     Dosage: 20 IU, 2X/DAY (20 UNITS IN AM, 20 UNITS IN PM)
  7. LYRICA [Suspect]
     Active Substance: PREGABALIN
     Indication: NEUROPATHY PERIPHERAL
     Dosage: 225 MG, 2X/DAY
     Route: 048
     Dates: start: 2012, end: 201807
  8. LISINOPRIL. [Concomitant]
     Active Substance: LISINOPRIL
     Indication: BLOOD PRESSURE ABNORMAL
     Dosage: TWO 20 MG TABLETS ONCE A DAY
  9. XANAX [Concomitant]
     Active Substance: ALPRAZOLAM
     Indication: ANXIETY
     Dosage: 0.25 MG, AS NEEDED (TAKE 1 TABLET BY MOUTH DAILY)
     Route: 048
  10. ZESTRIL [Concomitant]
     Active Substance: LISINOPRIL
     Dosage: 40 MG, 1X/DAY (TAKE TWO TABLETS BY MOUTH ONCE DAILY)
     Route: 048
  11. MAGNESIUM [Concomitant]
     Active Substance: MAGNESIUM
     Dosage: 500 MG, DAILY
     Route: 048
  12. MELATONIN [Concomitant]
     Active Substance: MELATONIN
     Dosage: 20 MG, 2X/DAY (TAKE 2 TABLETS BY MOUTH NIGHTY)
     Route: 048
  13. FLEXERIL [Concomitant]
     Active Substance: CYCLOBENZAPRINE HYDROCHLORIDE
     Indication: MUSCLE SPASMS
     Dosage: 10 MG, AS NEEDED (TAKE 1 TABLET BY MOUTH 2 TIMES DAILY)
     Route: 048
  14. GLUCOPHAGE [Concomitant]
     Active Substance: METFORMIN HYDROCHLORIDE
     Dosage: 1000 MG, 2X/DAY (TAKE TWO TABLETS BY MOUTH TWICE DAILY)
     Route: 048
  15. WARFARIN [Concomitant]
     Active Substance: WARFARIN
     Dosage: 5 MG, UNK (TAKE 2.5 MG M F AND 5 MG WARFARIN THE OTHER DAYS OF THE WEEK )
  16. METFORMIN [Concomitant]
     Active Substance: METFORMIN HYDROCHLORIDE
     Indication: DIABETES MELLITUS
     Dosage: 1000 MG, 2X/DAY
  17. KENALOG [Concomitant]
     Active Substance: TRIAMCINOLONE ACETONIDE
     Dosage: UNK UNK, 2X/DAY (APPLY TWICE DAILY AFFECTED AREA)
  18. INVOKANA [Concomitant]
     Active Substance: CANAGLIFLOZIN
     Dosage: 100 MG, 1X/DAY (TAKE 1 TABLET BY MOUTH DAILY (BEFORE BREAKFAST)
     Route: 048

REACTIONS (7)
  - Insomnia [Unknown]
  - Feeling abnormal [Unknown]
  - Withdrawal syndrome [Not Recovered/Not Resolved]
  - Hypertension [Unknown]
  - Pain [Unknown]
  - Mood swings [Unknown]
  - Anxiety [Unknown]

NARRATIVE: CASE EVENT DATE: 20141215
